FAERS Safety Report 9150970 (Version 1)
Quarter: 2013Q1

REPORT INFORMATION
  Report Type: Other
  Country: US (occurrence: US)
  Receive Date: 20130308
  Receipt Date: 20130308
  Transmission Date: 20140127
  Serious: Yes (Hospitalization)
  Sender: FDA-Public Use
  Company Number: US-BRISTOL-MYERS SQUIBB COMPANY-17456724

PATIENT
  Age: 75 Year
  Sex: Female

DRUGS (5)
  1. METFORMIN HCL [Suspect]
  2. GLIPIZIDE [Suspect]
  3. NATEGLINIDE [Suspect]
  4. BACTRIM [Suspect]
  5. OXYCODONE [Concomitant]

REACTIONS (5)
  - Osteomyelitis [Unknown]
  - Hypoglycaemia [Unknown]
  - Delirium [Recovering/Resolving]
  - Decreased appetite [Unknown]
  - Inappropriate schedule of drug administration [Unknown]
